FAERS Safety Report 24096981 (Version 1)
Quarter: 2024Q3

REPORT INFORMATION
  Report Type: Spontaneous
  Country: US (occurrence: US)
  Receive Date: 20240716
  Receipt Date: 20240716
  Transmission Date: 20241017
  Serious: No
  Sender: GRIFOLS
  Company Number: US-IGSA-BIG0027756

PATIENT
  Age: 15 Year
  Sex: Male

DRUGS (6)
  1. HUMAN IMMUNOGLOBULIN G [Suspect]
     Active Substance: HUMAN IMMUNOGLOBULIN G
     Indication: Type 1 diabetes mellitus
     Route: 042
  2. CYCLOSPORINE [Suspect]
     Active Substance: CYCLOSPORINE
     Indication: Type 1 diabetes mellitus
     Route: 065
  3. DUPILUMAB [Suspect]
     Active Substance: DUPILUMAB
     Indication: Type 1 diabetes mellitus
     Route: 065
  4. DAPSONE [Suspect]
     Active Substance: DAPSONE
     Indication: Type 1 diabetes mellitus
     Route: 065
  5. TACROLIMUS [Concomitant]
     Active Substance: TACROLIMUS
     Route: 061
  6. CROMOLYN SODIUM [Concomitant]
     Active Substance: CROMOLYN SODIUM
     Route: 065

REACTIONS (3)
  - Malaise [Unknown]
  - Vomiting [Unknown]
  - Meningitis aseptic [Unknown]
